FAERS Safety Report 4571239-X (Version None)
Quarter: 2005Q1

REPORT INFORMATION
  Report Type: 
  Country: None (occurrence: None)
  Receive Date: 20050202
  Receipt Date: 20050120
  Transmission Date: 20050727
  Serious: Yes (Hospitalization)
  Sender: FDA-Public Use
  Company Number: 2005BI001499

PATIENT
  Age: 46 Year
  Sex: Male
  Weight: 73.9363 kg

DRUGS (7)
  1. AVONEX [Suspect]
     Indication: MULTIPLE SCLEROSIS
     Dosage: 30 UG; QW; IM
     Route: 030
     Dates: start: 20000101, end: 20030601
  2. AVONEX [Suspect]
     Indication: MULTIPLE SCLEROSIS
     Dosage: 30 UG; QW; IM
     Route: 030
     Dates: start: 20030601
  3. CLONAZEPAM [Concomitant]
  4. ZOLOFT [Concomitant]
  5. TYLENOL [Concomitant]
  6. ALEVE [Concomitant]
  7. PAXIL [Concomitant]

REACTIONS (2)
  - INSOMNIA [None]
  - ULCER HAEMORRHAGE [None]
